FAERS Safety Report 7151888-5 (Version None)
Quarter: 2010Q4

REPORT INFORMATION
  Report Type: 
  Country: None (occurrence: None)
  Receive Date: 20101210
  Receipt Date: 20101201
  Transmission Date: 20110411
  Serious: Yes (Hospitalization)
  Sender: FDA-Public Use
  Company Number: CA-ABBOTT-10P-028-0689015-01

PATIENT
  Sex: Male
  Weight: 67 kg

DRUGS (4)
  1. HUMIRA [Suspect]
     Indication: PSORIASIS
     Route: 058
     Dates: start: 20091008
  2. CORTICOSTEROIDS [Concomitant]
     Indication: PSORIASIS
     Dosage: LOW POTENCY
  3. RETIONOID [Concomitant]
     Indication: PSORIASIS
  4. TAZAROTENE [Concomitant]
     Indication: PSORIASIS

REACTIONS (1)
  - CROHN'S DISEASE [None]
